FAERS Safety Report 9282192 (Version 1)
Quarter: 2013Q2

REPORT INFORMATION
  Report Type: Spontaneous
  Country: US (occurrence: US)
  Receive Date: 20130510
  Receipt Date: 20130510
  Transmission Date: 20140414
  Serious: No
  Sender: FDA-Public Use
  Company Number: US-PFIZER INC-2013143343

PATIENT
  Age: 69 Year
  Sex: Male
  Weight: 74.83 kg

DRUGS (5)
  1. SUTENT [Suspect]
     Indication: PANCREATIC NEOPLASM
     Dosage: 50 MG, UNK
     Route: 048
  2. SUTENT [Suspect]
     Dosage: 25 MG, UNK
  3. LEVOTHYROXINE [Concomitant]
     Indication: THYROID DISORDER
     Dosage: 75 UG, 1X/DAY
  4. AMLODIPINE [Concomitant]
     Indication: HYPERTENSION
     Dosage: 10 MG, 1X/DAY
  5. LISINOPRIL [Concomitant]
     Indication: HYPERTENSION
     Dosage: 20 MG, 1X/DAY

REACTIONS (4)
  - Disease progression [Unknown]
  - Pancreatic neoplasm [Unknown]
  - Nasal congestion [Not Recovered/Not Resolved]
  - Respiratory tract congestion [Not Recovered/Not Resolved]
